FAERS Safety Report 13102423 (Version 1)
Quarter: 2017Q1

REPORT INFORMATION
  Report Type: Spontaneous
  Country: NL (occurrence: NL)
  Receive Date: 20170110
  Receipt Date: 20170110
  Transmission Date: 20170428
  Serious: Yes (Life-Threatening, Other)
  Sender: FDA-Public Use
  Company Number: NL-JUBILANT CADISTA PHARMACEUTICALS-2016JUB00446

PATIENT
  Age: 24 Year
  Sex: Male

DRUGS (6)
  1. ALCOHOL. [Suspect]
     Active Substance: ALCOHOL
     Route: 048
  2. ATENOLOL. [Suspect]
     Active Substance: ATENOLOL
     Route: 048
  3. QUETIAPINE. [Suspect]
     Active Substance: QUETIAPINE
  4. PRAZOSIN [Suspect]
     Active Substance: PRAZOSIN
     Route: 065
  5. CYCLOBENZAPRINE [Suspect]
     Active Substance: CYCLOBENZAPRINE
     Route: 048
  6. DIVALPROEX [Suspect]
     Active Substance: DIVALPROEX SODIUM
     Route: 048

REACTIONS (4)
  - Acute respiratory distress syndrome [Recovered/Resolved]
  - Shock [Recovered/Resolved]
  - Aspiration [Recovered/Resolved]
  - Overdose [Recovered/Resolved]
